FAERS Safety Report 12441573 (Version 1)
Quarter: 2016Q2

REPORT INFORMATION
  Report Type: Other
  Country: PT (occurrence: PT)
  Receive Date: 20160607
  Receipt Date: 20160607
  Transmission Date: 20160815
  Serious: Yes (Death)
  Sender: FDA-Public Use
  Company Number: PT-DEXPHARM-20161190

PATIENT
  Age: 72 Year
  Sex: Female

DRUGS (1)
  1. DICLOFENAC INJECTION [Suspect]
     Active Substance: DICLOFENAC
     Indication: ANTIPYRESIS
     Dosage: 75MG/3ML INJECTION
     Route: 058

REACTIONS (1)
  - Embolia cutis medicamentosa [Fatal]
